FAERS Safety Report 9741559 (Version 2)
Quarter: 2013Q4

REPORT INFORMATION
  Report Type: Spontaneous
  Country: IT (occurrence: IT)
  Receive Date: 20131210
  Receipt Date: 20131210
  Transmission Date: 20140711
  Serious: Yes (Other)
  Sender: FDA-Public Use
  Company Number: IT-ROCHE-1137851

PATIENT
  Age: 62 Year
  Sex: Female

DRUGS (4)
  1. BONDRONAT [Suspect]
     Indication: METASTASES TO BONE
     Route: 048
     Dates: start: 20080903, end: 20110606
  2. HERCEPTIN [Concomitant]
     Route: 065
  3. PACLITAXEL [Concomitant]
     Route: 065
     Dates: start: 20080601, end: 20081201
  4. FEMARA [Concomitant]
     Route: 048

REACTIONS (1)
  - Osteonecrosis [Not Recovered/Not Resolved]
